FAERS Safety Report 5936767-0 (Version None)
Quarter: 2008Q4

REPORT INFORMATION
  Report Type: 
  Country: None (occurrence: None)
  Receive Date: 20081027
  Receipt Date: 20081022
  Transmission Date: 20090506
  Serious: Yes (Hospitalization, Other)
  Sender: FDA-Public Use
  Company Number: GAM-175-08-FR

PATIENT
  Age: 60 Year
  Sex: Male

DRUGS (5)
  1. OCTAGAM [Suspect]
     Indication: POLYNEUROPATHY
     Dosage: 30 G, I.V.
     Route: 042
     Dates: start: 20080701
  2. OCTAGAM [Suspect]
  3. OCTAGAM [Suspect]
  4. OCTAGAM [Suspect]
  5. OCTAGAM 5%(HUMAN NORMAL IMMUNEGGLOBULIN FOR INTRAVENOUS ADMINISTRATION [Suspect]

REACTIONS (7)
  - COLD AGGLUTININS POSITIVE [None]
  - NEUROPATHY PERIPHERAL [None]
  - NEUTROPENIA [None]
  - OPHTHALMOPLEGIA [None]
  - PARAPROTEINAEMIA [None]
  - THROMBOCYTOPENIA [None]
  - WHITE BLOOD CELL COUNT DECREASED [None]
